FAERS Safety Report 7975790-1 (Version None)
Quarter: 2011Q4

REPORT INFORMATION
  Report Type: 
  Country: None (occurrence: None)
  Receive Date: 20111213
  Receipt Date: 20110920
  Transmission Date: 20120403
  Serious: No
  Sender: FDA-Public Use
  Company Number: US-AMGEN-USASP2011048624

PATIENT
  Sex: Female

DRUGS (4)
  1. PREDNISONE TAB [Concomitant]
  2. BETA BLOCKING AGENTS [Concomitant]
  3. ENBREL [Suspect]
     Indication: RHEUMATOID ARTHRITIS
     Dosage: 50 MG, QWK
     Route: 058
  4. SYNTHROID [Concomitant]

REACTIONS (5)
  - MYALGIA [None]
  - CYSTITIS [None]
  - DRY EYE [None]
  - WEIGHT DECREASED [None]
  - NEURODERMATITIS [None]
